FAERS Safety Report 5553831-9 (Version None)
Quarter: 2007Q4

REPORT INFORMATION
  Report Type: 
  Country: None (occurrence: None)
  Receive Date: 20071213
  Receipt Date: 20071204
  Transmission Date: 20080405
  Serious: Yes (Other)
  Sender: FDA-Public Use
  Company Number: JP-ROCHE-533455

PATIENT
  Age: 11 Year
  Sex: Male
  Weight: 41 kg

DRUGS (6)
  1. TAMIFLU [Suspect]
     Route: 048
     Dates: start: 20070308, end: 20070308
  2. NEOMALLERMIN-TR [Concomitant]
     Dosage: DRUG REPORTED AS NEOMALLERMIN (D-CHLORPHENIRAMINE MALEATE).
     Route: 048
     Dates: start: 20070308, end: 20070313
  3. ASVERIN [Concomitant]
     Route: 048
     Dates: start: 20070308, end: 20070316
  4. MUCOSOLVAN [Concomitant]
     Route: 048
     Dates: start: 20070308, end: 20070316
  5. NEUZYM [Concomitant]
     Dosage: GENERIC REPORTED AS LYSOZYME HYDROCHLORIDE.
     Route: 048
     Dates: start: 20070308, end: 20070316
  6. HOKUNALIN [Concomitant]
     Dosage: FORMULATION REPORTED AS TAPE.
     Route: 048
     Dates: start: 20070308, end: 20070313

REACTIONS (1)
  - ABNORMAL BEHAVIOUR [None]
